FAERS Safety Report 6208338-2 (Version None)
Quarter: 2009Q2

REPORT INFORMATION
  Report Type: 
  Country: None (occurrence: None)
  Receive Date: 20090529
  Receipt Date: 20090521
  Transmission Date: 20091009
  Serious: Yes (Hospitalization)
  Sender: FDA-Public Use
  Company Number: ES-ELI_LILLY_AND_COMPANY-ES200905004675

PATIENT
  Age: 73 Year
  Sex: Female

DRUGS (7)
  1. FORTEO [Suspect]
     Indication: OSTEOPOROSIS
     Dosage: 20 UG, UNKNOWN
     Route: 058
     Dates: start: 20080401
  2. CARDYL [Concomitant]
     Dosage: 40 MG, UNKNOWN
     Route: 065
  3. ADIRO [Concomitant]
     Dosage: 100 MG, UNKNOWN
     Route: 065
  4. MORPHINE [Concomitant]
     Indication: PAIN
     Dosage: UNK, UNKNOWN
     Route: 065
  5. GELOCATIL [Concomitant]
     Dosage: UNK, UNKNOWN
     Route: 065
  6. HUMULIN /00646001/ [Concomitant]
     Indication: DIABETES MELLITUS
     Dosage: UNK, UNKNOWN
     Route: 065
  7. PANTOPRAZOL [Concomitant]
     Indication: GASTRIC DISORDER
     Dosage: UNK, UNKNOWN
     Route: 065

REACTIONS (8)
  - ANGINA PECTORIS [None]
  - ANOREXIA [None]
  - BRONCHOSPASM [None]
  - DEPRESSED MOOD [None]
  - DEPRESSION [None]
  - DYSPNOEA [None]
  - RENAL FAILURE [None]
  - RESPIRATORY FAILURE [None]
